FAERS Safety Report 19954943 (Version 1)
Quarter: 2021Q4

REPORT INFORMATION
  Report Type: Report from Study
  Country: CA (occurrence: CA)
  Receive Date: 20211014
  Receipt Date: 20211014
  Transmission Date: 20220303
  Serious: Yes (Hospitalization)
  Sender: FDA-Public Use
  Company Number: CA-MYLANLABS-2021M1072064

PATIENT
  Age: 29 Year
  Sex: Male

DRUGS (10)
  1. VALPROIC ACID [Suspect]
     Active Substance: VALPROIC ACID
     Indication: Autism spectrum disorder
     Dosage: 750 MILLIGRAM, BID
     Route: 065
  2. ZOPICLONE [Suspect]
     Active Substance: ZOPICLONE
     Indication: Aggression
     Dosage: 15 MILLIGRAM, QID
     Route: 065
  3. ZOPICLONE [Suspect]
     Active Substance: ZOPICLONE
     Indication: Impulsive behaviour
  4. BENZTROPINE [Suspect]
     Active Substance: BENZTROPINE
     Indication: Autism spectrum disorder
     Dosage: 1 MILLIGRAM, BID
     Route: 048
  5. ARIPIPRAZOLE [Suspect]
     Active Substance: ARIPIPRAZOLE
     Indication: Autism spectrum disorder
     Dosage: 20 MILLIGRAM, QD, EVERY MORNING
     Route: 048
  6. FLUVOXAMINE [Suspect]
     Active Substance: FLUVOXAMINE
     Indication: Autism spectrum disorder
     Dosage: FLUVOXAMINE 75 MG EVERY MORNING 50MG NIGHTLY
     Route: 048
  7. ZUCLOPENTHIXOL ACETATE [Suspect]
     Active Substance: ZUCLOPENTHIXOL ACETATE
     Indication: Autism spectrum disorder
     Dosage: 10 MILLIGRAM, BID
     Route: 048
  8. LORAZEPAM [Suspect]
     Active Substance: LORAZEPAM
     Indication: Autism spectrum disorder
     Dosage: 2-4 MG EVERY 6 HOUR AND AS NEEDED
     Route: 065
  9. GAMMA AMINO BETA HYDROXYBUTYRIC ACID [Concomitant]
     Indication: Autism spectrum disorder
     Dosage: 500 MILLIGRAM, TID
     Route: 065
  10. LOXAPINE [Concomitant]
     Active Substance: LOXAPINE
     Indication: Autism spectrum disorder
     Dosage: 10-25 MG, AS NECESSARY
     Route: 048

REACTIONS (2)
  - Drug ineffective for unapproved indication [Unknown]
  - Off label use [Unknown]
